FAERS Safety Report 12118870 (Version 3)
Quarter: 2016Q1

REPORT INFORMATION
  Report Type: Report from Study
  Country: CA (occurrence: CA)
  Receive Date: 20160226
  Receipt Date: 20160319
  Transmission Date: 20160526
  Serious: Yes (Disabling)
  Sender: FDA-Public Use
  Company Number: CA-AMGEN-CANSL2016022726

PATIENT
  Age: 37 Year
  Sex: Female

DRUGS (2)
  1. ARANESP [Suspect]
     Active Substance: DARBEPOETIN ALFA
     Indication: CHRONIC KIDNEY DISEASE
  2. ARANESP [Suspect]
     Active Substance: DARBEPOETIN ALFA
     Indication: HAEMOGLOBIN DECREASED
     Dosage: 20 MUG, Q2WK
     Route: 058
     Dates: start: 20160125

REACTIONS (3)
  - Oedema peripheral [Recovering/Resolving]
  - Malaise [Unknown]
  - Mobility decreased [Unknown]

NARRATIVE: CASE EVENT DATE: 20160312
